FAERS Safety Report 23075695 (Version 3)
Quarter: 2023Q4

REPORT INFORMATION
  Report Type: Spontaneous
  Country: US (occurrence: US)
  Receive Date: 20231017
  Receipt Date: 20231116
  Transmission Date: 20240110
  Serious: Yes (Life-Threatening, Other)
  Sender: FDA-Public Use
  Company Number: US-MYLANLABS-2023M1107670

PATIENT
  Sex: Male

DRUGS (2)
  1. EPINEPHRINE [Suspect]
     Active Substance: EPINEPHRINE
     Indication: Anaphylactic reaction
     Dosage: UNK
     Route: 065
  2. EPINEPHRINE [Suspect]
     Active Substance: EPINEPHRINE
     Dosage: UNK (BACKUP)
     Route: 065

REACTIONS (6)
  - Device failure [Unknown]
  - Gait disturbance [Unknown]
  - Pain in extremity [Unknown]
  - Injury associated with device [Unknown]
  - Injection site pain [Unknown]
  - Needle issue [Unknown]
